FAERS Safety Report 7645224-5 (Version None)
Quarter: 2011Q3

REPORT INFORMATION
  Report Type: 
  Country: None (occurrence: None)
  Receive Date: 20110729
  Receipt Date: 20110721
  Transmission Date: 20111222
  Serious: Yes (Other)
  Sender: FDA-Public Use
  Company Number: JP-MERCK-1107USA01844

PATIENT
  Age: 76 Year
  Sex: Female

DRUGS (4)
  1. PEPCID [Suspect]
     Route: 048
     Dates: start: 20110701
  2. MUCOSTA [Concomitant]
     Route: 048
     Dates: start: 20110701
  3. ALFAROL [Concomitant]
     Route: 048
     Dates: start: 20110701
  4. OLMESARTAN MEDOXOMIL [Suspect]
     Route: 048
     Dates: start: 20110701

REACTIONS (1)
  - INAPPROPRIATE ANTIDIURETIC HORMONE SECRETION [None]
